FAERS Safety Report 25368253 (Version 1)
Quarter: 2025Q2

REPORT INFORMATION
  Report Type: Spontaneous
  Country: US (occurrence: None)
  Receive Date: 20250528
  Receipt Date: 20250528
  Transmission Date: 20250716
  Serious: Yes (Hospitalization)
  Sender: FDA-CTU
  Company Number: None

PATIENT
  Age: 34 Month
  Sex: Female
  Weight: 12.7 kg

DRUGS (3)
  1. CARBOPLATIN [Suspect]
     Active Substance: CARBOPLATIN
     Dates: end: 20250406
  2. ETOPOSIDE [Suspect]
     Active Substance: ETOPOSIDE
     Dates: end: 20250406
  3. MELPHALAN [Suspect]
     Active Substance: MELPHALAN
     Dates: end: 20250405

REACTIONS (24)
  - Sepsis [None]
  - Respiratory failure [None]
  - Febrile convulsion [None]
  - Meningitis [None]
  - Transplant [None]
  - Loss of consciousness [None]
  - Musculoskeletal stiffness [None]
  - Mucosal inflammation [None]
  - Nausea [None]
  - Vomiting [None]
  - Hypoxia [None]
  - Otitis media [None]
  - Bacteraemia [None]
  - Respiratory syncytial virus infection [None]
  - Inappropriate schedule of product administration [None]
  - Vomiting [None]
  - Pyrexia [None]
  - Ear infection [None]
  - Purulent discharge [None]
  - Pseudomonas infection [None]
  - Aeromonas infection [None]
  - Enterobacter infection [None]
  - Bacterial translocation [None]
  - Acidosis [None]

NARRATIVE: CASE EVENT DATE: 20250517
